FAERS Safety Report 8444238-5 (Version None)
Quarter: 2012Q2

REPORT INFORMATION
  Report Type: 
  Country: None (occurrence: None)
  Receive Date: 20120611
  Receipt Date: 20120604
  Transmission Date: 20120825
  Serious: Yes (Other)
  Sender: FDA-Public Use
  Company Number: 2012-00126

PATIENT
  Age: 48 Year
  Sex: Male
  Weight: 70.3075 kg

DRUGS (1)
  1. ZICAM COLD REMEDY RAPIDMELTS WITH ECHINACEA [Suspect]
     Indication: NASOPHARYNGITIS
     Dosage: 2-3 RAPIDMELTS DAILY
     Dates: start: 20120530, end: 20120604

REACTIONS (2)
  - ANOSMIA [None]
  - AGEUSIA [None]
